FAERS Safety Report 25396115 (Version 1)
Quarter: 2025Q2

REPORT INFORMATION
  Report Type: Spontaneous
  Country: US (occurrence: None)
  Receive Date: 20250603
  Receipt Date: 20250603
  Transmission Date: 20250717
  Serious: Yes (Hospitalization, Disabling, Other)
  Sender: FDA-CTU
  Company Number: None

PATIENT
  Age: 45 Year
  Sex: Female
  Weight: 74.25 kg

DRUGS (4)
  1. SERTRALINE HYDROCHLORIDE [Suspect]
     Active Substance: SERTRALINE HYDROCHLORIDE
     Indication: Migraine
     Dates: start: 20221001, end: 20230109
  2. SERTRALINE HYDROCHLORIDE [Suspect]
     Active Substance: SERTRALINE HYDROCHLORIDE
     Indication: Premenstrual dysphoric disorder
  3. ATIVAN [Concomitant]
     Active Substance: LORAZEPAM
  4. MAGNESIUM [Concomitant]
     Active Substance: MAGNESIUM

REACTIONS (59)
  - Anxiety [None]
  - Chest pain [None]
  - Panic attack [None]
  - Loss of personal independence in daily activities [None]
  - Feeding disorder [None]
  - Cardiac disorder [None]
  - Fluid intake reduced [None]
  - Movement disorder [None]
  - Suicidal ideation [None]
  - Serotonin syndrome [None]
  - Depression [None]
  - Sympathomimetic effect [None]
  - Agoraphobia [None]
  - Dyspnoea [None]
  - Akathisia [None]
  - Anhedonia [None]
  - Social problem [None]
  - Apathy [None]
  - Dizziness [None]
  - Brain fog [None]
  - Bruxism [None]
  - Burning sensation [None]
  - Body temperature fluctuation [None]
  - Formication [None]
  - Crying [None]
  - Depersonalisation/derealisation disorder [None]
  - Derealisation [None]
  - Balance disorder [None]
  - Tinnitus [None]
  - Anaesthesia [None]
  - Fatigue [None]
  - Vision blurred [None]
  - Vitreous floaters [None]
  - Facial pain [None]
  - Hypoaesthesia [None]
  - Muscle spasms [None]
  - Muscular weakness [None]
  - Tremor [None]
  - Abdominal discomfort [None]
  - Alopecia [None]
  - Migraine [None]
  - Bradycardia [None]
  - Hormone level abnormal [None]
  - Tremor [None]
  - Intrusive thoughts [None]
  - Myalgia [None]
  - Irritability [None]
  - Amnesia [None]
  - Menstrual disorder [None]
  - Autophobia [None]
  - Nausea [None]
  - Vomiting [None]
  - Obsessive thoughts [None]
  - Restless legs syndrome [None]
  - Speech disorder [None]
  - Chills [None]
  - Vertigo [None]
  - Fear [None]
  - Electric shock sensation [None]

NARRATIVE: CASE EVENT DATE: 20230105
